FAERS Safety Report 24311171 (Version 1)
Quarter: 2024Q3

REPORT INFORMATION
  Report Type: Spontaneous
  Country: US (occurrence: US)
  Receive Date: 20240912
  Receipt Date: 20240912
  Transmission Date: 20241017
  Serious: No
  Sender: BRISTOL MYERS SQUIBB
  Company Number: US-BRISTOL-MYERS SQUIBB COMPANY-2024-144591

PATIENT
  Age: 89 Year
  Sex: Male

DRUGS (1)
  1. OPDUALAG [Suspect]
     Active Substance: NIVOLUMAB\RELATLIMAB
     Indication: Malignant melanoma
     Dosage: DOSE : 480 MG 160 MG; STRENGHT^ : 240 MG/80MG
     Route: 042

REACTIONS (1)
  - Blood thyroid stimulating hormone increased [Unknown]
